FAERS Safety Report 12459090 (Version 4)
Quarter: 2016Q3

REPORT INFORMATION
  Report Type: Spontaneous
  Country: JP (occurrence: JP)
  Receive Date: 20160613
  Receipt Date: 20160829
  Transmission Date: 20161109
  Serious: Yes (Life-Threatening, Hospitalization)
  Sender: FDA-Public Use
  Company Number: JP-ELI_LILLY_AND_COMPANY-JP201606001632

PATIENT
  Age: 27 Year
  Sex: Male
  Weight: 62 kg

DRUGS (9)
  1. DEPAKENE [Suspect]
     Active Substance: VALPROIC ACID
     Indication: SUICIDE ATTEMPT
     Dosage: 3600 MG, QD
     Route: 048
     Dates: start: 20131008, end: 20131008
  2. HIRNAMIN                           /00038601/ [Suspect]
     Active Substance: LEVOMEPROMAZINE
     Indication: BIPOLAR DISORDER
     Dosage: 25 MG, QD
     Route: 048
     Dates: start: 20130822, end: 20131007
  3. RISPERDAL [Suspect]
     Active Substance: RISPERIDONE
     Indication: SUICIDE ATTEMPT
     Dosage: 13 MG, QD
     Route: 048
     Dates: start: 20131008, end: 20131008
  4. CYMBALTA [Suspect]
     Active Substance: DULOXETINE HYDROCHLORIDE
     Indication: BIPOLAR DISORDER
     Dosage: 20 MG, QD
     Route: 048
     Dates: start: 20130409, end: 20131007
  5. LULLAN [Suspect]
     Active Substance: PEROSPIRONE HYDROCHLORIDE
     Indication: SUICIDE ATTEMPT
     Dosage: 200 MG, QD
     Route: 048
     Dates: start: 20131008, end: 20131008
  6. HIRNAMIN                           /00038601/ [Suspect]
     Active Substance: LEVOMEPROMAZINE
     Indication: SUICIDE ATTEMPT
     Dosage: 350 MG, QD
     Route: 048
     Dates: start: 20131008, end: 20131008
  7. CYMBALTA [Suspect]
     Active Substance: DULOXETINE HYDROCHLORIDE
     Indication: SUICIDE ATTEMPT
     Dosage: 100 MG, QD
     Route: 048
     Dates: start: 20131008, end: 20131008
  8. LUVOX [Suspect]
     Active Substance: FLUVOXAMINE MALEATE
     Indication: SUICIDE ATTEMPT
     Dosage: 2250 MG, QD
     Route: 048
     Dates: start: 20131008, end: 20131008
  9. ROHYPNOL [Suspect]
     Active Substance: FLUNITRAZEPAM
     Indication: SUICIDE ATTEMPT
     Dosage: 13 MG, QD
     Route: 048
     Dates: start: 20131008, end: 20131008

REACTIONS (10)
  - Suicide attempt [Recovered/Resolved]
  - Intentional product misuse [Recovered/Resolved]
  - Pneumonia [Recovered/Resolved]
  - Dehydration [Unknown]
  - Neuroleptic malignant syndrome [Recovered/Resolved]
  - Off label use [Recovered/Resolved]
  - Rhabdomyolysis [Recovered/Resolved]
  - Coma [Recovered/Resolved]
  - Pleural effusion [Recovered/Resolved]
  - Coma blister [Recovered/Resolved]

NARRATIVE: CASE EVENT DATE: 20130409
